FAERS Safety Report 17354586 (Version 1)
Quarter: 2020Q1

REPORT INFORMATION
  Report Type: Spontaneous
  Country: US (occurrence: US)
  Receive Date: 20200130
  Receipt Date: 20200130
  Transmission Date: 20200409
  Serious: Yes (Other)
  Sender: FDA-Public Use
  Company Number: None

PATIENT

DRUGS (1)
  1. ENOXAPARIN SODIUM 80MG/0.8ML SOLUTION [Suspect]
     Active Substance: ENOXAPARIN SODIUM

REACTIONS (3)
  - Exposure during pregnancy [None]
  - Therapy non-responder [None]
  - Pregnancy [None]
